FAERS Safety Report 23333463 (Version 9)
Quarter: 2024Q2

REPORT INFORMATION
  Report Type: Report from Study
  Country: CA (occurrence: CA)
  Receive Date: 20231222
  Receipt Date: 20240513
  Transmission Date: 20240716
  Serious: Yes (Other)
  Sender: FDA-Public Use
  Company Number: CA-GILEAD-2023-0656091

PATIENT
  Age: 66 Year
  Sex: Female

DRUGS (46)
  1. SACITUZUMAB GOVITECAN-HZIY [Suspect]
     Active Substance: SACITUZUMAB GOVITECAN-HZIY
     Indication: Hormone receptor positive HER2 negative breast cancer
     Dosage: 662 MG
     Route: 042
     Dates: start: 20231212
  2. SACITUZUMAB GOVITECAN-HZIY [Suspect]
     Active Substance: SACITUZUMAB GOVITECAN-HZIY
     Dosage: UNK, DAY 01
     Route: 042
     Dates: start: 20240201
  3. SACITUZUMAB GOVITECAN-HZIY [Suspect]
     Active Substance: SACITUZUMAB GOVITECAN-HZIY
     Dosage: UNK, DAY 8
     Route: 042
     Dates: start: 20240208, end: 20240229
  4. SACITUZUMAB GOVITECAN-HZIY [Suspect]
     Active Substance: SACITUZUMAB GOVITECAN-HZIY
     Dosage: 662 MG
     Route: 042
     Dates: start: 20231212
  5. SACITUZUMAB GOVITECAN-HZIY [Suspect]
     Active Substance: SACITUZUMAB GOVITECAN-HZIY
     Dosage: 662 MG
     Route: 042
     Dates: start: 20231212, end: 20240328
  6. ACETAMINOPHEN [Concomitant]
     Active Substance: ACETAMINOPHEN
     Dosage: 650 MG PO (PRIOR TRODELVY INFUSION)
     Route: 048
  7. PANTO A [Concomitant]
     Active Substance: ACETAMINOPHEN\CHLORPHENIRAMINE MALEATE\GUAIFENESIN
     Dosage: 40 MG PO
     Route: 048
  8. DVITAL [Concomitant]
     Dosage: 2000 IU
     Route: 048
  9. ACETAMINOPHEN [Concomitant]
     Active Substance: ACETAMINOPHEN
     Indication: Pyrexia
     Dosage: 500 MG
     Route: 048
  10. CODEINE BERK [Concomitant]
     Dosage: 1 DOSAGE FORM
     Route: 048
  11. CLINAZAL [Concomitant]
  12. ZOPICLONE [Concomitant]
     Active Substance: ZOPICLONE
     Dosage: UNK, PRN
  13. METOCLOPRAMIDE HYDROCHLORIDE [Concomitant]
     Active Substance: METOCLOPRAMIDE HYDROCHLORIDE
     Dosage: UNK, PRN
  14. DIPHENHYDRAMINE [Concomitant]
     Active Substance: DIPHENHYDRAMINE
     Dosage: 25 MG IV (PRIOR TRODELVY INFUSION)
  15. DIPHENHYDRAMINE [Concomitant]
     Active Substance: DIPHENHYDRAMINE
     Dosage: 25 MG IV (PRIOR TRODELVY INFUSION)
  16. DIPHENHYDRAMINE [Concomitant]
     Active Substance: DIPHENHYDRAMINE
     Dosage: 25 MG IV (PRIOR TRODELVY INFUSION)
  17. DIPHENHYDRAMINE [Concomitant]
     Active Substance: DIPHENHYDRAMINE
     Dosage: 25 MG IV (PRIOR TRODELVY INFUSION)
  18. DIPHENHYDRAMINE [Concomitant]
     Active Substance: DIPHENHYDRAMINE
     Dosage: 25 MG IV (PRIOR TRODELVY INFUSION)
  19. DIPHENHYDRAMINE [Concomitant]
     Active Substance: DIPHENHYDRAMINE
     Dosage: 25 MG IV (PRIOR TRODELVY INFUSION)
  20. DIPHENHYDRAMINE [Concomitant]
     Active Substance: DIPHENHYDRAMINE
     Dosage: 25 MG IV (PRIOR TRODELVY INFUSION)
  21. DIPHENHYDRAMINE [Concomitant]
     Active Substance: DIPHENHYDRAMINE
     Dosage: 25 MG (PRIOR TRODELVY INFUSION)
     Route: 042
  22. DIPHENHYDRAMINE [Concomitant]
     Active Substance: DIPHENHYDRAMINE
     Dosage: 25 MG IV (PRIOR TRODELVY INFUSION)
  23. FAMOTIDINE [Concomitant]
     Active Substance: FAMOTIDINE
     Dosage: 40 MG PO  (PRIOR TRODELVY INFUSION)
  24. FAMOTIDINE [Concomitant]
     Active Substance: FAMOTIDINE
     Dosage: 40 MG PO (PRIOR TRODELVY INFUSION)
  25. FAMOTIDINE [Concomitant]
     Active Substance: FAMOTIDINE
     Dosage: 40 MG PO (PRIOR TRODELVY INFUSION)
  26. FAMOTIDINE [Concomitant]
     Active Substance: FAMOTIDINE
     Dosage: 40 MG PO (PRIOR TRODELVY INFUSION)
  27. FAMOTIDINE [Concomitant]
     Active Substance: FAMOTIDINE
     Dosage: 40 MG PO (PRIOR TRODELVY INFUSION)
  28. FAMOTIDINE [Concomitant]
     Active Substance: FAMOTIDINE
     Dosage: 40 MG PO (PRIOR TRODELVY INFUSION)
  29. FAMOTIDINE [Concomitant]
     Active Substance: FAMOTIDINE
     Dosage: 40 MG PO (PRIOR TRODELVY INFUSION)
  30. FAMOTIDINE [Concomitant]
     Active Substance: FAMOTIDINE
     Dosage: 40 MG (PRIOR TRODELVY INFUSION)
     Route: 048
  31. FAMOTIDINE [Concomitant]
     Active Substance: FAMOTIDINE
     Dosage: 40 MG PO (PRIOR TRODELVY INFUSION)
  32. DIMENHYDRINATE [Concomitant]
     Active Substance: DIMENHYDRINATE
     Dosage: 50 MG IV  (PRIOR TRODELVY INFUSION)
  33. DIMENHYDRINATE [Concomitant]
     Active Substance: DIMENHYDRINATE
     Dosage: 50 MG IV (PRIOR TRODELVY INFUSION
  34. DIMENHYDRINATE [Concomitant]
     Active Substance: DIMENHYDRINATE
     Dosage: 50 MG IV (PRIOR TRODELVY INFUSION)
  35. DIMENHYDRINATE [Concomitant]
     Active Substance: DIMENHYDRINATE
     Dosage: 50 MG IV (PRIOR TRODELVY INFUSION)
  36. DIMENHYDRINATE [Concomitant]
     Active Substance: DIMENHYDRINATE
     Dosage: 50 MG IV (PRIOR TRODELVY INFUSION)
  37. DIMENHYDRINATE [Concomitant]
     Active Substance: DIMENHYDRINATE
     Dosage: 50 MG IV (PRIOR TRODELVY INFUSION)
  38. DIMENHYDRINATE [Concomitant]
     Active Substance: DIMENHYDRINATE
     Dosage: 50 MG IV (PRIOR TRODELVY INFUSION)
  39. DIMENHYDRINATE [Concomitant]
     Active Substance: DIMENHYDRINATE
     Dosage: 50 MG (PRIOR TRODELVY INFUSION)
     Route: 042
  40. DIMENHYDRINATE [Concomitant]
     Active Substance: DIMENHYDRINATE
     Dosage: 50 MG IV (PRIOR TRODELVY INFUSION)
  41. XARELTO [Concomitant]
     Active Substance: RIVAROXABAN
     Dosage: 1 PO
     Route: 048
  42. CLONAZEPAM [Concomitant]
     Active Substance: CLONAZEPAM
  43. CHOLECALCIFEROL [Concomitant]
     Active Substance: CHOLECALCIFEROL
     Dosage: 2000 IU
     Route: 048
  44. CODEINE [Concomitant]
     Active Substance: CODEINE
     Dosage: UNK
     Route: 048
  45. CODEINE [Concomitant]
     Active Substance: CODEINE
     Dosage: UNK, PRN
     Route: 048
  46. PANTO [PANTHENOL] [Concomitant]
     Active Substance: PANTHENOL
     Dosage: 40 MG PO

REACTIONS (11)
  - Neutrophil count abnormal [Not Recovered/Not Resolved]
  - Neutropenia [Unknown]
  - Pneumonia [Recovering/Resolving]
  - Cystitis [Recovering/Resolving]
  - Alopecia [Unknown]
  - Weight fluctuation [Unknown]
  - Insomnia [Unknown]
  - Cough [Unknown]
  - Pyrexia [Unknown]
  - Chills [Unknown]
  - Chest discomfort [Unknown]

NARRATIVE: CASE EVENT DATE: 20231225
